FAERS Safety Report 13249395 (Version 8)
Quarter: 2018Q2

REPORT INFORMATION
  Report Type: Spontaneous
  Country: US (occurrence: US)
  Receive Date: 20170218
  Receipt Date: 20180614
  Transmission Date: 20180711
  Serious: No
  Sender: FDA-Public Use
  Company Number: US-TEVA-727504ACC

PATIENT
  Age: 49 Year
  Sex: Female

DRUGS (27)
  1. MAGNESIUM [Concomitant]
     Active Substance: MAGNESIUM
     Route: 065
     Dates: start: 20160726
  2. CELEXA [Concomitant]
     Active Substance: CITALOPRAM HYDROBROMIDE
     Route: 065
     Dates: start: 20160516
  3. DESLORATADINE. [Concomitant]
     Active Substance: DESLORATADINE
     Route: 065
     Dates: start: 20170825
  4. COPAXONE [Suspect]
     Active Substance: GLATIRAMER ACETATE
     Indication: MULTIPLE SCLEROSIS
     Dosage: PEN/PFS
     Route: 058
     Dates: start: 20150528
  5. FLUOROMETHOL [Concomitant]
     Active Substance: FLUOROMETHOLONE
     Dosage: SUSPENSION
     Route: 065
     Dates: start: 20170821
  6. NEURONTIN [Concomitant]
     Active Substance: GABAPENTIN
     Route: 065
     Dates: start: 20160516
  7. HYDROCODONE [Concomitant]
     Active Substance: HYDROCODONE
  8. NEXIUM [Concomitant]
     Active Substance: ESOMEPRAZOLE MAGNESIUM
     Route: 065
     Dates: start: 20150518
  9. CRESTOR [Concomitant]
     Active Substance: ROSUVASTATIN CALCIUM
  10. OMEPRAZOLE. [Concomitant]
     Active Substance: OMEPRAZOLE
     Route: 065
     Dates: start: 20170624
  11. CLARINEX [Concomitant]
     Active Substance: DESLORATADINE
     Route: 065
     Dates: start: 20180430
  12. VITAMIN C [Concomitant]
     Active Substance: ASCORBIC ACID
     Route: 065
     Dates: start: 20160728
  13. CITALOPRAM [Concomitant]
     Active Substance: CITALOPRAM HYDROBROMIDE
     Route: 065
     Dates: start: 20171102
  14. MEMANTINE. [Concomitant]
     Active Substance: MEMANTINE
  15. ROSUVASTATIN. [Concomitant]
     Active Substance: ROSUVASTATIN
  16. VITAMIN D3 [Concomitant]
     Active Substance: CHOLECALCIFEROL
     Route: 065
     Dates: start: 20100726
  17. ALENDRONATE [Concomitant]
     Active Substance: ALENDRONATE SODIUM
     Route: 065
     Dates: start: 20170625
  18. GABAPENTIN. [Concomitant]
     Active Substance: GABAPENTIN
     Route: 065
     Dates: start: 20180408
  19. LISINOPRIL. [Concomitant]
     Active Substance: LISINOPRIL
     Route: 065
     Dates: start: 20150618
  20. PROPANOLOL [Concomitant]
     Active Substance: PROPRANOLOL HYDROCHLORIDE
     Route: 065
     Dates: start: 20161026
  21. CINNAMON. [Concomitant]
     Active Substance: CINNAMON
     Route: 065
     Dates: start: 20160729
  22. ADDERALL [Concomitant]
     Active Substance: AMPHETAMINE ASPARTATE\AMPHETAMINE SULFATE\DEXTROAMPHETAMINE SACCHARATE\DEXTROAMPHETAMINE SULFATE
     Route: 065
     Dates: start: 20170302
  23. RESTASIS [Concomitant]
     Active Substance: CYCLOSPORINE
     Route: 065
     Dates: start: 20170821
  24. LIPITOR [Concomitant]
     Active Substance: ATORVASTATIN CALCIUM
     Route: 065
     Dates: start: 20170721
  25. ATORVASTATIN [Concomitant]
     Active Substance: ATORVASTATIN
     Route: 065
     Dates: start: 20180409
  26. CLONAZEPAM. [Concomitant]
     Active Substance: CLONAZEPAM
     Route: 065
     Dates: start: 20180306
  27. SYSTANE (HYPROMELLOSE 2910 (4000 MPA.S)) [Concomitant]
     Active Substance: HYPROMELLOSE 2910 (4000 MPA.S)
     Dosage: SOLUTION
     Route: 065
     Dates: start: 20170621

REACTIONS (9)
  - Gait disturbance [Not Recovered/Not Resolved]
  - Motor dysfunction [Not Recovered/Not Resolved]
  - Depression [Not Recovered/Not Resolved]
  - Vision blurred [Unknown]
  - Injection site reaction [Not Recovered/Not Resolved]
  - Malaise [Not Recovered/Not Resolved]
  - Gait disturbance [Unknown]
  - Memory impairment [Unknown]
  - Gait disturbance [Not Recovered/Not Resolved]

NARRATIVE: CASE EVENT DATE: 201612
